FAERS Safety Report 15857435 (Version 3)
Quarter: 2019Q3

REPORT INFORMATION
  Report Type: Spontaneous
  Country: US (occurrence: US)
  Receive Date: 20190123
  Receipt Date: 20190819
  Transmission Date: 20191004
  Serious: No
  Sender: FDA-Public Use
  Company Number: US-MYLANLABS-2019M1000632

PATIENT
  Age: 57 Year
  Sex: Female
  Weight: 100 kg

DRUGS (1)
  1. ESTRADIOL TRANSDERMAL SYSTEM [Suspect]
     Active Substance: ESTRADIOL
     Indication: PRODUCT USED FOR UNKNOWN INDICATION
     Dosage: UNK
     Route: 062
     Dates: start: 20181203

REACTIONS (4)
  - Product residue present [Unknown]
  - Application site irritation [Unknown]
  - Product adhesion issue [Unknown]
  - Product quality issue [Unknown]
